FAERS Safety Report 8135879-3 (Version None)
Quarter: 2012Q1

REPORT INFORMATION
  Report Type: 
  Country: None (occurrence: None)
  Receive Date: 20120214
  Receipt Date: 20120207
  Transmission Date: 20120608
  Serious: Yes (Other)
  Sender: FDA-Public Use
  Company Number: NA-GLAXOSMITHKLINE-B0780345A

PATIENT
  Age: 21 Year
  Sex: Male

DRUGS (1)
  1. ATOVAQUONE [Suspect]
     Indication: MALARIA PROPHYLAXIS
     Dosage: 1TAB PER DAY
     Route: 065
     Dates: start: 20120202, end: 20120206

REACTIONS (1)
  - DYSURIA [None]
